FAERS Safety Report 8772727 (Version 1)
Quarter: 2012Q4

REPORT INFORMATION
  Report Type: 
  Country: FR (occurrence: FR)
  Receive Date: 20120907
  Receipt Date: 20120907
  Transmission Date: 20130627
  Serious: Yes (Hospitalization, Other)
  Sender: FDA-Public Use
  Company Number: FR-ROCHE-1110477

PATIENT
  Age: 58 Year
  Sex: Female

DRUGS (18)
  1. MABTHERA [Suspect]
     Indication: RHEUMATOID ARTHRITIS
     Route: 065
     Dates: start: 20091001, end: 201110
  2. LYRICA [Suspect]
     Indication: PAIN
     Route: 048
     Dates: start: 2010, end: 20120315
  3. METHOTREXATE [Suspect]
     Indication: RHEUMATOID ARTHRITIS
     Route: 058
     Dates: start: 19970101, end: 20120315
  4. ACTONEL [Suspect]
     Indication: PRODUCT USED FOR UNKNOWN INDICATION
     Route: 065
     Dates: start: 2010, end: 20120315
  5. INEXIUM [Suspect]
     Indication: PRODUCT USED FOR UNKNOWN INDICATION
     Route: 065
     Dates: start: 2010, end: 20120315
  6. AMITRIPTYLINE [Suspect]
     Indication: DEPRESSION
     Dosage: 40 mg/ml
     Route: 048
     Dates: end: 20120303
  7. ETANERCEPT [Suspect]
     Indication: RHEUMATOID ARTHRITIS
     Route: 058
     Dates: start: 20111018, end: 20120303
  8. XANAX [Concomitant]
     Route: 065
     Dates: start: 20120302
  9. ESCITALOPRAM [Concomitant]
     Route: 065
     Dates: start: 20120302, end: 20120315
  10. ESCITALOPRAM [Concomitant]
     Route: 065
     Dates: start: 20120302, end: 20120315
  11. NISIS [Concomitant]
  12. FLODIL [Concomitant]
  13. STILNOX [Concomitant]
  14. CORTANCYL [Concomitant]
  15. SPECIAFOLDINE [Concomitant]
  16. DAFALGAN [Concomitant]
  17. SULFARLEM [Concomitant]
  18. VOLTAREN EMULGEL [Concomitant]

REACTIONS (6)
  - Agranulocytosis [Recovered/Resolved]
  - Oedema peripheral [Recovered/Resolved]
  - Asthenia [Recovered/Resolved]
  - Headache [Recovered/Resolved]
  - Chills [Recovered/Resolved]
  - Bone marrow failure [Recovered/Resolved]
